FAERS Safety Report 18201659 (Version 1)
Quarter: 2020Q3

REPORT INFORMATION
  Report Type: Spontaneous
  Country: FR (occurrence: FR)
  Receive Date: 20200827
  Receipt Date: 20200827
  Transmission Date: 20201103
  Serious: Yes (Hospitalization, Other)
  Sender: FDA-Public Use
  Company Number: FR-AMGEN-FRASP2020136962

PATIENT
  Age: 61 Year
  Sex: Female
  Weight: 57 kg

DRUGS (7)
  1. NEULASTA [Suspect]
     Active Substance: PEGFILGRASTIM
     Indication: PLASMA CELL MYELOMA
     Dosage: 6 MILLIGRAM
     Route: 058
     Dates: start: 20171224, end: 20171224
  2. ALKERAN [Suspect]
     Active Substance: MELPHALAN
     Indication: PLASMA CELL MYELOMA
     Dosage: 320 MILLIGRAM
     Route: 041
     Dates: start: 20171219, end: 20171219
  3. EMEND [Suspect]
     Active Substance: APREPITANT
     Dosage: 125 MILLIGRAM
     Route: 041
     Dates: start: 20171219, end: 20171221
  4. ZOPHREN [ONDANSETRON HYDROCHLORIDE] [Suspect]
     Active Substance: ONDANSETRON
     Indication: PLASMA CELL MYELOMA
     Dosage: 8 MILLIGRAM
     Route: 041
     Dates: start: 20171219, end: 20171220
  5. EMEND [Suspect]
     Active Substance: APREPITANT
     Indication: PLASMA CELL MYELOMA
     Dosage: 80 MILLIGRAM
     Route: 041
     Dates: start: 20171219, end: 20171221
  6. ZOMETA [Concomitant]
     Active Substance: ZOLEDRONIC ACID
     Dosage: UNK
  7. ZELITREX [Concomitant]
     Active Substance: VALACYCLOVIR HYDROCHLORIDE
     Dosage: 500 MILLIGRAM
     Route: 065

REACTIONS (5)
  - Febrile bone marrow aplasia [Recovered/Resolved]
  - Diarrhoea [Recovered/Resolved]
  - Asthenia [Recovered/Resolved]
  - Mucosal inflammation [Recovered/Resolved]
  - Vomiting [Recovered/Resolved]

NARRATIVE: CASE EVENT DATE: 20171226
